FAERS Safety Report 20296200 (Version 2)
Quarter: 2022Q1

REPORT INFORMATION
  Report Type: Other
  Country: US (occurrence: US)
  Receive Date: 20220105
  Receipt Date: 20220304
  Transmission Date: 20220423
  Serious: No
  Sender: FDA-Public Use
  Company Number: US-NEUROCRINE BIOSCIENCES INC.-2021NBI07549

PATIENT

DRUGS (1)
  1. INGREZZA [Suspect]
     Active Substance: VALBENAZINE
     Indication: Tardive dyskinesia
     Dosage: 60 MILLIGRAM, QD, DAILY
     Route: 048
     Dates: start: 20210821

REACTIONS (3)
  - Muscle rigidity [Recovered/Resolved]
  - Somnolence [Unknown]
  - Fatigue [Unknown]
